FAERS Safety Report 16487599 (Version 1)
Quarter: 2019Q2

REPORT INFORMATION
  Report Type: Spontaneous
  Country: US (occurrence: US)
  Receive Date: 20190627
  Receipt Date: 20190627
  Transmission Date: 20190711
  Serious: No
  Sender: FDA-Public Use
  Company Number: US-AMNEAL PHARMACEUTICALS-2019AMN00048

PATIENT

DRUGS (1)
  1. ESTRADIOL. [Suspect]
     Active Substance: ESTRADIOL
     Indication: PRODUCT USED FOR UNKNOWN INDICATION
     Dosage: 10 MCG, 3X/WEEK
     Route: 065
     Dates: start: 201801, end: 201809

REACTIONS (5)
  - Back pain [Recovered/Resolved]
  - Micturition urgency [Recovered/Resolved]
  - Abdominal pain lower [Recovered/Resolved]
  - Upper respiratory tract infection [Recovered/Resolved]
  - Product packaging issue [Unknown]

NARRATIVE: CASE EVENT DATE: 201803
